FAERS Safety Report 8601543-7 (Version None)
Quarter: 2012Q3

REPORT INFORMATION
  Report Type: 
  Country: None (occurrence: None)
  Receive Date: 20120817
  Receipt Date: 20111213
  Transmission Date: 20120928
  Serious: Yes (Hospitalization)
  Sender: FDA-Public Use
  Company Number: US-BRISTOL-MYERS SQUIBB COMPANY-16211278

PATIENT
  Age: 74 Year
  Sex: Male
  Weight: 116 kg

DRUGS (5)
  1. SPRYCEL [Suspect]
     Indication: CHRONIC MYELOID LEUKAEMIA
     Route: 048
     Dates: start: 20111025
  2. TAMIFLU [Concomitant]
  3. LEVAQUIN [Concomitant]
  4. POTASSIUM [Concomitant]
  5. BUMEX [Concomitant]

REACTIONS (6)
  - PULMONARY OEDEMA [None]
  - DIARRHOEA [None]
  - ABDOMINAL DISTENSION [None]
  - PYREXIA [None]
  - DYSPNOEA [None]
  - VIRAL INFECTION [None]
